FAERS Safety Report 16913398 (Version 1)
Quarter: 2019Q4

REPORT INFORMATION
  Report Type: Spontaneous
  Country: CH (occurrence: CH)
  Receive Date: 20191014
  Receipt Date: 20191014
  Transmission Date: 20200122
  Serious: Yes (Other)
  Sender: FDA-Public Use
  Company Number: CH-ALK-ABELLO A/S-2019AA003403

PATIENT

DRUGS (2)
  1. PHARMALGEN APIS MELLIFERA [Suspect]
     Active Substance: APIS MELLIFERA
     Indication: ALLERGY TO VENOM
     Dosage: 31.1 MICROGRAM
     Route: 058
  2. PHARMALGEN APIS MELLIFERA [Suspect]
     Active Substance: APIS MELLIFERA
     Dosage: 111.1 UNK

REACTIONS (8)
  - Abdominal pain [Recovered/Resolved]
  - Back pain [Recovered/Resolved]
  - Product use issue [Recovered/Resolved]
  - Flushing [Recovered/Resolved]
  - Off label use [Recovered/Resolved]
  - Abdominal pain lower [Recovered/Resolved]
  - Urticaria [Recovered/Resolved]
  - Hypotension [Recovered/Resolved]
